FAERS Safety Report 24342644 (Version 2)
Quarter: 2025Q2

REPORT INFORMATION
  Report Type: Spontaneous
  Country: DE (occurrence: DE)
  Receive Date: 20240920
  Receipt Date: 20250407
  Transmission Date: 20250717
  Serious: Yes (Other)
  Sender: AUROBINDO
  Company Number: DE-SA-A01200605129

PATIENT
  Age: 32 Year
  Sex: Male

DRUGS (2)
  1. AMOXICILLIN TRIHYDRATE [Suspect]
     Active Substance: AMOXICILLIN
     Indication: Respiratory tract infection
     Route: 048
  2. METAMIZOLE [Concomitant]
     Active Substance: METAMIZOLE
     Indication: Respiratory tract infection
     Route: 048

REACTIONS (11)
  - Acanthosis [Recovered/Resolved]
  - Blister [Recovered/Resolved]
  - Dermatitis exfoliative generalised [Recovered/Resolved]
  - Eczema [Recovered/Resolved]
  - Erythema [Recovered/Resolved]
  - Papule [Recovered/Resolved]
  - Petechiae [Recovered/Resolved]
  - Pustule [Recovered/Resolved]
  - Skin burning sensation [Recovered/Resolved]
  - Subcutaneous abscess [Recovered/Resolved]
  - Symmetrical drug-related intertriginous and flexural exanthema [Recovered/Resolved]
